FAERS Safety Report 9299034 (Version 2)
Quarter: 2013Q2

REPORT INFORMATION
  Report Type: Spontaneous
  Country: GB (occurrence: None)
  Receive Date: 20130515
  Receipt Date: 20130521
  Transmission Date: 20140414
  Serious: Yes (Other)
  Sender: FDA-Public Use
  Company Number: AUR-APL-2013-03946

PATIENT
  Age: 59 Year
  Sex: Female

DRUGS (6)
  1. RAMIPRIL [Suspect]
     Indication: HYPERTENSION
     Dosage: (5 MG), UNKNOWN
     Dates: start: 20130409, end: 20130412
  2. SIMVASTATIN (SIMVASTATIN) [Suspect]
     Indication: BLOOD CHOLESTEROL INCREASED
     Dosage: (20 MG), UNKNOWN
     Dates: start: 20130409, end: 20130412
  3. CITALOPRAM (CITALOPRAM) [Concomitant]
  4. IBUPROFEN (IBUPROFEN) [Concomitant]
  5. PARACETAMOL (PARACETAMOL) [Concomitant]
  6. VENTOLIN (SALBUTAMOL) [Concomitant]

REACTIONS (3)
  - Swollen tongue [None]
  - Lymphadenopathy [None]
  - Glossodynia [None]
